FAERS Safety Report 6696284-X (Version None)
Quarter: 2010Q2

REPORT INFORMATION
  Report Type: 
  Country: None (occurrence: None)
  Receive Date: 20100426
  Receipt Date: 20100414
  Transmission Date: 20101027
  Serious: Yes (Other)
  Sender: FDA-Public Use
  Company Number: FI-JNJFOC-20100403936

PATIENT
  Age: 15 Year
  Sex: Male

DRUGS (6)
  1. CONCERTA [Suspect]
     Indication: DRUG USE FOR UNKNOWN INDICATION
     Route: 048
  2. CONCERTA [Suspect]
     Route: 048
  3. BUDESONIDE [Concomitant]
     Indication: ASTHMA
     Dosage: 2X2
     Route: 065
  4. BUVENTOL [Concomitant]
     Route: 065
  5. AMORION [Concomitant]
     Indication: BRONCHITIS
     Route: 065
  6. ACETAMINOPHEN [Concomitant]
     Route: 065

REACTIONS (1)
  - ELECTROCARDIOGRAM QT PROLONGED [None]
